FAERS Safety Report 6647559-1 (Version None)
Quarter: 2010Q1

REPORT INFORMATION
  Report Type: 
  Country: None (occurrence: None)
  Receive Date: 20100323
  Receipt Date: 20100323
  Transmission Date: 20100710
  Serious: No
  Sender: FDA-Public Use
  Company Number: None

PATIENT
  Age: 26 Year
  Sex: Male
  Weight: 79.3795 kg

DRUGS (2)
  1. EFFEXOR XR [Suspect]
     Indication: DEPRESSION
     Dosage: 150MG ONCE A DAY PO
     Route: 048
  2. ZOLOFT [Suspect]
     Indication: DEPRESSION
     Dosage: 150 MG ONCE A DAY PO
     Route: 048

REACTIONS (4)
  - ERECTILE DYSFUNCTION [None]
  - GENITAL HYPOAESTHESIA [None]
  - LIBIDO DECREASED [None]
  - SEXUAL DYSFUNCTION [None]
